FAERS Safety Report 6577756-5 (Version None)
Quarter: 2010Q1

REPORT INFORMATION
  Report Type: 
  Country: None (occurrence: None)
  Receive Date: 20100211
  Receipt Date: 20100203
  Transmission Date: 20100710
  Serious: Yes (Hospitalization, Other)
  Sender: FDA-Public Use
  Company Number: US-AMGEN-KDL374881

PATIENT
  Sex: Female
  Weight: 66 kg

DRUGS (24)
  1. EPOGEN [Suspect]
     Indication: DIALYSIS
     Dates: start: 20090620
  2. EPOGEN [Suspect]
     Dates: start: 20090623, end: 20090711
  3. EPOGEN [Suspect]
     Dates: start: 20090714, end: 20090723
  4. EPOGEN [Suspect]
     Route: 042
     Dates: start: 20090725, end: 20090811
  5. EPOGEN [Suspect]
     Route: 042
     Dates: start: 20090814, end: 20090822
  6. EPOGEN [Suspect]
     Route: 042
     Dates: start: 20090825, end: 20090912
  7. EPOGEN [Suspect]
     Route: 042
     Dates: start: 20090915, end: 20091112
  8. EPOGEN [Suspect]
     Dates: start: 20091222, end: 20091229
  9. EPOGEN [Suspect]
     Dates: start: 20091231, end: 20100114
  10. EPOGEN [Suspect]
     Dates: start: 20100116
  11. INFLUENZA VACCINE [Concomitant]
     Dates: start: 20091008
  12. VENOFER [Concomitant]
     Route: 042
  13. ZEMPLAR [Concomitant]
     Route: 042
  14. LISINOPRIL [Concomitant]
  15. HYDROXYZINE [Concomitant]
  16. CETIRIZINE HCL [Concomitant]
  17. COLACE [Concomitant]
  18. NEPHRO-CAPS [Concomitant]
  19. SEVELAMER [Concomitant]
     Route: 048
  20. METOPROLOL TARTRATE [Concomitant]
  21. ALBUTEROL [Concomitant]
     Route: 055
  22. SPIRIVA [Concomitant]
     Route: 055
  23. FLEXERIL [Concomitant]
  24. TEMAZEPAM [Concomitant]

REACTIONS (7)
  - ANGINA PECTORIS [None]
  - ANXIETY [None]
  - DYSPNOEA [None]
  - HAEMOGLOBIN DECREASED [None]
  - HOSPITALISATION [None]
  - RETICULOCYTE COUNT DECREASED [None]
  - VIRAL INFECTION [None]
